FAERS Safety Report 7200282-7 (Version None)
Quarter: 2010Q4

REPORT INFORMATION
  Report Type: 
  Country: None (occurrence: None)
  Receive Date: 20101228
  Receipt Date: 20101217
  Transmission Date: 20110411
  Serious: Yes (Hospitalization, Disabling)
  Sender: FDA-Public Use
  Company Number: B0687485A

PATIENT
  Sex: Female

DRUGS (14)
  1. VALTREX [Suspect]
     Indication: HERPES ZOSTER
     Dosage: 500MG PER DAY
     Route: 048
     Dates: start: 20101127, end: 20101129
  2. PARIET [Concomitant]
     Dosage: 10MG PER DAY
     Route: 048
  3. FUROSEMIDE [Concomitant]
     Dosage: 80MG PER DAY
     Route: 048
  4. ATELEC [Concomitant]
     Dosage: 10MG PER DAY
     Route: 048
  5. ALFAROL [Concomitant]
     Dosage: .25MG PER DAY
     Route: 048
  6. ASPIRIN [Concomitant]
     Dosage: 100MG PER DAY
     Route: 048
  7. SIGMART [Concomitant]
     Dosage: 15MG PER DAY
     Route: 048
  8. POLYFUL [Concomitant]
     Dosage: 3.6MG PER DAY
     Route: 048
  9. AZULENE SULFONATE SODIUM [Concomitant]
     Dosage: 1.5MG PER DAY
     Route: 048
  10. ADALAT CC [Concomitant]
     Dosage: 40MG PER DAY
     Route: 048
  11. DIOVAN [Concomitant]
     Dosage: 80MG PER DAY
     Route: 048
  12. ZOLOFT [Concomitant]
     Dosage: 12.5MG PER DAY
     Route: 048
  13. PONTAL [Concomitant]
     Indication: HEADACHE
     Dosage: 500MG PER DAY
     Route: 048
  14. MUCOSTA [Concomitant]
     Indication: HEADACHE
     Dosage: 200MG PER DAY
     Route: 048

REACTIONS (13)
  - ALTERED STATE OF CONSCIOUSNESS [None]
  - BLOOD UREA INCREASED [None]
  - CONFUSIONAL STATE [None]
  - DELIRIUM [None]
  - DELUSION [None]
  - DYSARTHRIA [None]
  - DYSKINESIA [None]
  - DYSLALIA [None]
  - EXTRAPYRAMIDAL DISORDER [None]
  - GAIT DISTURBANCE [None]
  - HALLUCINATION [None]
  - HEADACHE [None]
  - NIGHTMARE [None]
